FAERS Safety Report 9321350 (Version 3)
Quarter: 2013Q3

REPORT INFORMATION
  Report Type: Spontaneous
  Country: US (occurrence: US)
  Receive Date: 20130531
  Receipt Date: 20130802
  Transmission Date: 20140515
  Serious: Yes (Death)
  Sender: FDA-Public Use
  Company Number: US-PFIZER INC-2013164937

PATIENT
  Age: 56 Year
  Sex: Male
  Weight: 78.01 kg

DRUGS (3)
  1. LYRICA [Suspect]
     Indication: MUSCULOSKELETAL PAIN
     Dosage: 50 MG, 1X/DAY
     Route: 048
     Dates: start: 20100311
  2. LYRICA [Suspect]
     Indication: NEUROPATHY PERIPHERAL
  3. OXYCODONE [Concomitant]
     Indication: PAIN
     Dosage: UNK

REACTIONS (9)
  - Cardiac arrest [Fatal]
  - Acute myocardial infarction [Fatal]
  - Convulsion [Fatal]
  - Headache [Fatal]
  - Nausea [Fatal]
  - Diarrhoea [Fatal]
  - Vomiting [Fatal]
  - Fall [Fatal]
  - Hyperhidrosis [Fatal]
